FAERS Safety Report 4626609-8 (Version None)
Quarter: 2005Q1

REPORT INFORMATION
  Report Type: 
  Country: None (occurrence: None)
  Receive Date: 20050330
  Receipt Date: 20050314
  Transmission Date: 20050727
  Serious: Yes (Hospitalization)
  Sender: FDA-Public Use
  Company Number: US014887

PATIENT
  Age: 72 Year
  Sex: Female
  Weight: 73.0291 kg

DRUGS (10)
  1. ACTIQ [Suspect]
     Indication: ARTHRALGIA
     Dosage: 800 UG BUCCAL
     Route: 002
     Dates: start: 20041222, end: 20041231
  2. ACTIQ [Suspect]
     Indication: INTERVERTEBRAL DISC DISORDER
     Dosage: 800 UG BUCCAL
     Route: 002
     Dates: start: 20041222, end: 20041231
  3. ACTIQ [Suspect]
     Indication: SPINAL COLUMN STENOSIS
     Dosage: 800 UG BUCCAL
     Route: 002
     Dates: start: 20041222, end: 20041231
  4. ACTIQ [Suspect]
     Indication: ARTHRALGIA
     Dosage: 800 UG BUCCAL
     Route: 002
     Dates: start: 20050206
  5. ACTIQ [Suspect]
     Indication: INTERVERTEBRAL DISC DISORDER
     Dosage: 800 UG BUCCAL
     Route: 002
     Dates: start: 20050206
  6. ACTIQ [Suspect]
     Indication: SPINAL COLUMN STENOSIS
     Dosage: 800 UG BUCCAL
     Route: 002
     Dates: start: 20050206
  7. DURAGESIC-100 [Suspect]
     Indication: ARTHRALGIA
     Dosage: 100 UG Q72HR TRANSDERMAL
     Route: 062
     Dates: end: 20050101
  8. LIPITOR [Concomitant]
  9. TOPROL-XL [Concomitant]
  10. ZESTRIL [Concomitant]

REACTIONS (4)
  - CHILLS [None]
  - DECREASED APPETITE [None]
  - DIARRHOEA [None]
  - HYPERHIDROSIS [None]
